FAERS Safety Report 15293403 (Version 1)
Quarter: 2018Q3

REPORT INFORMATION
  Report Type: Spontaneous
  Country: US (occurrence: US)
  Receive Date: 20180820
  Receipt Date: 20180820
  Transmission Date: 20181010
  Serious: No
  Sender: FDA-Public Use
  Company Number: US-TEVA-797471USA

PATIENT
  Sex: Male

DRUGS (1)
  1. GLIBENCLAMIDE [Suspect]
     Active Substance: GLYBURIDE
     Indication: DIABETES MELLITUS
     Route: 048
     Dates: start: 20170807

REACTIONS (3)
  - Hypertension [Unknown]
  - Adverse event [Unknown]
  - Chest pain [Unknown]

NARRATIVE: CASE EVENT DATE: 201708
